FAERS Safety Report 8214635-1 (Version None)
Quarter: 2012Q1

REPORT INFORMATION
  Report Type: 
  Country: None (occurrence: None)
  Receive Date: 20120316
  Receipt Date: 20120312
  Transmission Date: 20120608
  Serious: Yes (Life-Threatening)
  Sender: FDA-Public Use
  Company Number: GB-BAXTER-2012BH007173

PATIENT

DRUGS (10)
  1. MAGNESIUM SULFATE [Suspect]
     Indication: PARENTERAL NUTRITION
     Route: 042
  2. VAMINOLACT [Suspect]
     Indication: PARENTERAL NUTRITION
     Route: 042
  3. CALCIUM GLUCONATE [Suspect]
     Indication: PARENTERAL NUTRITION
     Route: 042
  4. DEXTROSE CONCENTRATE SOLUTION 50% [Suspect]
     Indication: PARENTERAL NUTRITION
     Route: 042
  5. FLUCLOXACILLIN [Suspect]
     Indication: PRODUCT USED FOR UNKNOWN INDICATION
     Route: 065
  6. AMIKACIN [Suspect]
     Indication: PRODUCT USED FOR UNKNOWN INDICATION
     Route: 065
  7. ZINC SULFATE [Suspect]
     Indication: PARENTERAL NUTRITION
     Route: 042
  8. STERILE WATER FOR INJECTION IN PLASTIC CONTAINER [Suspect]
     Indication: PARENTERAL NUTRITION
     Route: 042
  9. DEXTROSE 10% [Suspect]
     Indication: PARENTERAL NUTRITION
     Route: 065
  10. RANITIDINE [Suspect]
     Indication: PRODUCT USED FOR UNKNOWN INDICATION
     Route: 065

REACTIONS (2)
  - BLOOD MAGNESIUM INCREASED [None]
  - RESPIRATORY ARREST [None]
